FAERS Safety Report 24571263 (Version 2)
Quarter: 2025Q1

REPORT INFORMATION
  Report Type: Report from Study
  Country: US (occurrence: US)
  Receive Date: 20241101
  Receipt Date: 20250210
  Transmission Date: 20250408
  Serious: Yes (Hospitalization)
  Sender: TAKEDA
  Company Number: US-TAKEDA-2023TUS081048

PATIENT
  Sex: Male

DRUGS (3)
  1. LANADELUMAB [Suspect]
     Active Substance: LANADELUMAB
     Indication: Immune system disorder
     Dosage: 150 MILLIGRAM, Q2WEEKS
     Dates: start: 20230702
  2. LANADELUMAB [Suspect]
     Active Substance: LANADELUMAB
     Dosage: 150 MILLIGRAM, Q2WEEKS
     Dates: start: 202307
  3. LANADELUMAB [Suspect]
     Active Substance: LANADELUMAB

REACTIONS (6)
  - Hereditary angioedema [Recovered/Resolved]
  - Weight increased [Unknown]
  - Weight decreased [Unknown]
  - Coronavirus infection [Unknown]
  - Product dose omission issue [Unknown]
  - Upper respiratory tract infection [Unknown]
